FAERS Safety Report 7236006-7 (Version None)
Quarter: 2011Q1

REPORT INFORMATION
  Report Type: 
  Country: None (occurrence: None)
  Receive Date: 20110103
  Receipt Date: 20110103
  Transmission Date: 20110831
  Serious: Yes (Other)
  Sender: FDA-Public Use
  Company Number: WAES 1012USA00754

PATIENT
  Age: 59 Year
  Sex: Female
  Weight: 53.978 kg

DRUGS (7)
  1. IXABEPILONE 32 MG [Suspect]
     Indication: BREAST CANCER METASTATIC
     Dosage: 49 MG/Q3W/IV
     Route: 042
     Dates: start: 20101130, end: 20101130
  2. COREG [Concomitant]
  3. PROTONIX [Concomitant]
  4. ZOLINZA [Suspect]
     Indication: BREAST CANCER METASTATIC
     Dosage: 400 MG/DAILY/PO
     Route: 048
     Dates: start: 20101129, end: 20101129
  5. AMIODARONE HCL [Concomitant]
  6. SYNTHROID [Concomitant]
  7. ATIVAN [Concomitant]

REACTIONS (5)
  - OVERDOSE [None]
  - INFUSION RELATED REACTION [None]
  - MEDICATION ERROR [None]
  - GENERALISED ERYTHEMA [None]
  - PRURITUS GENERALISED [None]
